FAERS Safety Report 4568374-9 (Version None)
Quarter: 2005Q1

REPORT INFORMATION
  Report Type: 
  Country: None (occurrence: None)
  Receive Date: 20050131
  Receipt Date: 20050113
  Transmission Date: 20050727
  Serious: Yes (Other)
  Sender: FDA-Public Use
  Company Number: S04-DEN-08095-01

PATIENT
  Age: 28 Year
  Sex: Female

DRUGS (4)
  1. CITALOPRAM HYDROBROMIDE [Suspect]
     Indication: DEPRESSION
     Dosage: 20 MG QD PO
     Route: 048
  2. THIOPENTAL SODIUM [Suspect]
     Indication: INDUCTION OF ANAESTHESIA
     Dosage: 500 MG ONCE IV
     Route: 042
     Dates: start: 20041104, end: 20041104
  3. CONTRACEPTIVE PILLS (ORAL CONTRACEPTIVE NOS) [Concomitant]
  4. NON-PRESCRIPTION PAIN KILLER (NOS) [Concomitant]

REACTIONS (5)
  - DRUG INTERACTION [None]
  - MUSCLE RIGIDITY [None]
  - MUSCLE SPASMS [None]
  - PHYSICAL ASSAULT [None]
  - RESPIRATORY DISORDER [None]
